FAERS Safety Report 8287654-7 (Version None)
Quarter: 2012Q2

REPORT INFORMATION
  Report Type: 
  Country: None (occurrence: None)
  Receive Date: 20120416
  Receipt Date: 20120411
  Transmission Date: 20120825
  Serious: Yes (Hospitalization, Other)
  Sender: FDA-Public Use
  Company Number: PHHY2012AU031138

PATIENT
  Sex: Male

DRUGS (1)
  1. CLOZARIL [Suspect]
     Dosage: 300 MG, UNK
     Dates: start: 20120319

REACTIONS (5)
  - TROPONIN INCREASED [None]
  - MYOCARDITIS [None]
  - RESPIRATORY DISORDER [None]
  - NAUSEA [None]
  - PNEUMONIA [None]
